FAERS Safety Report 4948577-1 (Version None)
Quarter: 2006Q1

REPORT INFORMATION
  Report Type: 
  Country: None (occurrence: None)
  Receive Date: 20060320
  Receipt Date: 20060208
  Transmission Date: 20060701
  Serious: Yes (Hospitalization)
  Sender: FDA-Public Use
  Company Number: JP-MERCK-0602USA04309

PATIENT
  Age: 53 Year
  Sex: Male

DRUGS (7)
  1. PEPCID [Suspect]
     Indication: PROPHYLAXIS
     Route: 042
     Dates: start: 20060128, end: 20060130
  2. UNASYN (AMPICILLIN SODIUM (+) SULBACTAM SODIUM) [Concomitant]
     Indication: PNEUMONIA
     Route: 042
     Dates: start: 20060128, end: 20060130
  3. CIPROXIN [Concomitant]
     Indication: PNEUMONIA
     Route: 042
     Dates: start: 20060130, end: 20060131
  4. CEFMETAZON [Concomitant]
     Indication: OPEN FRACTURE
     Route: 042
     Dates: start: 20060124, end: 20060127
  5. PROPOFOL [Concomitant]
     Indication: GENERAL ANAESTHESIA
     Route: 042
     Dates: start: 20060225, end: 20060225
  6. VECURONIUM BROMIDE [Concomitant]
     Indication: GENERAL ANAESTHESIA
     Route: 042
     Dates: start: 20060225, end: 20060225
  7. FENTANYL [Concomitant]
     Indication: GENERAL ANAESTHESIA
     Route: 042
     Dates: start: 20060225, end: 20060225

REACTIONS (3)
  - ALANINE AMINOTRANSFERASE INCREASED [None]
  - ASPARTATE AMINOTRANSFERASE INCREASED [None]
  - LIVER DISORDER [None]
